FAERS Safety Report 8464994-X (Version None)
Quarter: 2012Q2

REPORT INFORMATION
  Report Type: 
  Country: None (occurrence: None)
  Receive Date: 20120626
  Receipt Date: 20120522
  Transmission Date: 20120825
  Serious: Yes (Hospitalization, Other)
  Sender: FDA-Public Use
  Company Number: JP-ASTELLAS-2012JP002285

PATIENT
  Sex: Female
  Weight: 38.8 kg

DRUGS (13)
  1. WARFARIN SODIUM [Concomitant]
     Indication: CEREBRAL INFARCTION
  2. FAMOTIDINE [Concomitant]
     Dosage: 10 MG, UID/QD
     Route: 033
     Dates: start: 20120127
  3. WARFARIN SODIUM [Concomitant]
     Indication: ATRIAL FIBRILLATION
     Dosage: 2 MG, UID/QD
     Route: 033
     Dates: start: 20120127
  4. ALOSENN [Concomitant]
     Dosage: 0.5 G, UNKNOWN/D
     Route: 033
     Dates: start: 20120127
  5. MAGLAX [Concomitant]
     Dosage: 0.6 G, TID
     Route: 065
  6. ALDACTONE [Concomitant]
     Dosage: 25 MG, UNKNOWN/D
     Route: 033
     Dates: start: 20120127
  7. VESICARE [Suspect]
     Indication: HYPERTONIC BLADDER
     Dosage: 2.5 MG, UID/QD
     Route: 033
     Dates: start: 20120201, end: 20120301
  8. VERAPAMIL HCL [Interacting]
     Indication: ATRIAL FIBRILLATION
     Dosage: 40 MG, BID
     Route: 014
     Dates: start: 20120127, end: 20120301
  9. ATELEC [Concomitant]
     Dosage: 20 MG, UNKNOWN/D
     Route: 033
     Dates: start: 20120127
  10. FUROSEMIDE [Concomitant]
     Dosage: 20 MG, UID/QD
     Route: 065
  11. SENNA-MINT WAF [Concomitant]
     Dosage: 0.5 G, UID/QD
     Route: 065
  12. VERAPAMIL HCL [Interacting]
     Indication: CEREBRAL INFARCTION
  13. MAGNESIUM CHLORIDE [Concomitant]
     Dosage: 2 G, UNKNOWN/D
     Route: 033
     Dates: start: 20120127

REACTIONS (2)
  - ATRIAL FIBRILLATION [None]
  - DRUG INTERACTION [None]
